FAERS Safety Report 9678134 (Version 2)
Quarter: 2013Q4

REPORT INFORMATION
  Report Type: Spontaneous
  Country: US (occurrence: US)
  Receive Date: 20131108
  Receipt Date: 20131108
  Transmission Date: 20140711
  Serious: No
  Sender: FDA-Public Use
  Company Number: US-MYLANLABS-2013S1016257

PATIENT
  Age: 17 Year
  Sex: Female
  Weight: 52.62 kg

DRUGS (4)
  1. MODAFINIL TABLETS USP [Suspect]
     Indication: SYSTEMIC LUPUS ERYTHEMATOSUS
     Route: 048
     Dates: start: 20130703, end: 20130713
  2. MODAFINIL TABLETS USP [Suspect]
     Indication: OFF LABEL USE
     Route: 048
     Dates: start: 20130703, end: 20130713
  3. MODAFINIL TABLETS USP [Suspect]
     Indication: FATIGUE
     Route: 048
     Dates: start: 20130703, end: 20130713
  4. MODAFINIL TABLETS USP [Suspect]
     Indication: FATIGUE
     Route: 048
     Dates: start: 20130703, end: 20130713

REACTIONS (5)
  - Asthenia [Recovered/Resolved]
  - Nausea [Recovered/Resolved]
  - Somnolence [Recovered/Resolved]
  - Feeling abnormal [Recovered/Resolved]
  - Unevaluable event [Recovered/Resolved]
